FAERS Safety Report 5464899-2 (Version None)
Quarter: 2007Q3

REPORT INFORMATION
  Report Type: 
  Country: None (occurrence: None)
  Receive Date: 20070921
  Receipt Date: 20070912
  Transmission Date: 20080115
  Serious: Yes (Other)
  Sender: FDA-Public Use
  Company Number: GB-PFIZER INC-2007076507

PATIENT
  Age: 28 Year
  Sex: Female
  Weight: 53 kg

DRUGS (2)
  1. VARENICLINE TABLETS [Suspect]
     Indication: SMOKING CESSATION THERAPY
     Dosage: TEXT:0.5 MG
     Route: 048
     Dates: start: 20070524, end: 20070525
  2. FLUCLOXACILLIN [Concomitant]
     Indication: SKIN INFECTION
     Route: 048
     Dates: start: 20050510, end: 20070517

REACTIONS (12)
  - ABDOMINAL PAIN UPPER [None]
  - ARTHRALGIA [None]
  - BODY TEMPERATURE FLUCTUATION [None]
  - DIZZINESS [None]
  - HEADACHE [None]
  - MYALGIA [None]
  - NASAL CONGESTION [None]
  - NAUSEA [None]
  - PALPITATIONS [None]
  - PHARYNGOLARYNGEAL PAIN [None]
  - TINNITUS [None]
  - VISUAL DISTURBANCE [None]
